FAERS Safety Report 7821264-8 (Version None)
Quarter: 2011Q4

REPORT INFORMATION
  Report Type: 
  Country: None (occurrence: None)
  Receive Date: 20111018
  Receipt Date: 20110518
  Transmission Date: 20120403
  Serious: No
  Sender: FDA-Public Use
  Company Number: US-ASTRAZENECA-2011SE20417

PATIENT
  Age: 69 Year
  Sex: Female

DRUGS (3)
  1. SYMBICORT [Suspect]
     Indication: ASTHMA
     Dosage: 160/4.5 MCG TWO PUFFS TWO TIMES A DAY
     Route: 055
     Dates: start: 20100101
  2. SYMBICORT [Suspect]
     Indication: BRONCHITIS
     Dosage: 160/4.5 MCG TWO PUFFS TWO TIMES A DAY
     Route: 055
     Dates: start: 20100101
  3. SPIRIVA [Concomitant]

REACTIONS (4)
  - DYSGEUSIA [None]
  - DEVICE MISUSE [None]
  - DYSPNOEA [None]
  - DRUG DOSE OMISSION [None]
